FAERS Safety Report 19736174 (Version 2)
Quarter: 2021Q4

REPORT INFORMATION
  Report Type: Other
  Country: CA (occurrence: CA)
  Receive Date: 20210824
  Receipt Date: 20211203
  Transmission Date: 20220303
  Serious: Yes (Hospitalization)
  Sender: FDA-Public Use
  Company Number: CA-APOTEX-2021AP035724

PATIENT
  Sex: Female

DRUGS (5)
  1. MONTELUKAST [Suspect]
     Active Substance: MONTELUKAST SODIUM
     Indication: Product used for unknown indication
     Dosage: 10 MILLIGRAM, QD
     Route: 048
  2. PREDNISONE [Suspect]
     Active Substance: PREDNISONE
     Indication: Product used for unknown indication
     Dosage: 5 MILLIGRAM, QD
     Route: 048
  3. ALBUTEROL [Suspect]
     Active Substance: ALBUTEROL
     Indication: Product used for unknown indication
     Dosage: 2 DOSAGE FORM, QID
  4. TIOTROPIUM BROMIDE [Suspect]
     Active Substance: TIOTROPIUM BROMIDE
     Indication: Product used for unknown indication
     Dosage: 2 DOSAGE FORM, QD
  5. BUDESONIDE\FORMOTEROL FUMARATE [Suspect]
     Active Substance: BUDESONIDE\FORMOTEROL FUMARATE
     Indication: Product used for unknown indication
     Dosage: 1 DOSAGE FORM, QD

REACTIONS (9)
  - Dyspnoea [Unknown]
  - Asthma [Unknown]
  - Wheezing [Unknown]
  - Sleep disorder due to a general medical condition [Unknown]
  - Obstruction [Unknown]
  - Loss of personal independence in daily activities [Unknown]
  - Cough [Unknown]
  - Full blood count abnormal [Unknown]
  - Therapeutic product effect incomplete [Unknown]
